FAERS Safety Report 6294372-3 (Version None)
Quarter: 2009Q3

REPORT INFORMATION
  Report Type: 
  Country: None (occurrence: None)
  Receive Date: 20090803
  Receipt Date: 20090722
  Transmission Date: 20100115
  Serious: Yes (Other)
  Sender: FDA-Public Use
  Company Number: US-PFIZER INC-2009245208

PATIENT
  Sex: Male

DRUGS (3)
  1. NORPACE [Suspect]
  2. ARTHROTEC [Suspect]
  3. NATRECOR [Suspect]

REACTIONS (2)
  - HYPERKALAEMIA [None]
  - RENAL FAILURE [None]
